FAERS Safety Report 9411087 (Version 1)
Quarter: 2013Q3

REPORT INFORMATION
  Report Type: Report from Study
  Country: TR (occurrence: TR)
  Receive Date: 20130720
  Receipt Date: 20130720
  Transmission Date: 20140515
  Serious: Yes (Hospitalization)
  Sender: FDA-Public Use
  Company Number: TR-US-EMD SERONO, INC.-7224188

PATIENT
  Sex: Male
  Weight: 82 kg

DRUGS (2)
  1. REBIF [Suspect]
     Indication: MULTIPLE SCLEROSIS
     Route: 058
     Dates: start: 200905
  2. ETODOLAC [Suspect]
     Indication: ANALGESIC THERAPY
     Route: 048
     Dates: start: 200905

REACTIONS (1)
  - Gallbladder disorder [Recovering/Resolving]
